FAERS Safety Report 5067907-6 (Version None)
Quarter: 2006Q3

REPORT INFORMATION
  Report Type: 
  Country: None (occurrence: None)
  Receive Date: 20060731
  Receipt Date: 20060724
  Transmission Date: 20061208
  Serious: Yes (Hospitalization)
  Sender: FDA-Public Use
  Company Number: 2006-02520

PATIENT
  Age: 36 Year
  Sex: Female
  Weight: 75.3 kg

DRUGS (4)
  1. QUININE SULFATE [Suspect]
     Indication: MUSCLE SPASMS
     Dosage: 1 TABLET AT BEDTIME, PRN,ORAL
     Route: 048
     Dates: start: 20011101, end: 20060601
  2. AMBIEN [Concomitant]
     Indication: PAIN
  3. LORTAB [Concomitant]
  4. XANAX [Concomitant]

REACTIONS (15)
  - ANURIA [None]
  - BACK PAIN [None]
  - DYSURIA [None]
  - FEELING ABNORMAL [None]
  - GAIT DISTURBANCE [None]
  - HEADACHE [None]
  - HYPERACUSIS [None]
  - LIVER FUNCTION TEST ABNORMAL [None]
  - MICTURITION URGENCY [None]
  - NAUSEA [None]
  - PHOTOPHOBIA [None]
  - RENAL DISORDER [None]
  - VISION BLURRED [None]
  - VOMITING [None]
  - WHITE BLOOD CELL COUNT INCREASED [None]
